FAERS Safety Report 5613186-8 (Version None)
Quarter: 2008Q1

REPORT INFORMATION
  Report Type: 
  Country: None (occurrence: None)
  Receive Date: 20080129
  Receipt Date: 20080118
  Transmission Date: 20080703
  Serious: Yes (Hospitalization)
  Sender: FDA-Public Use
  Company Number: GXKR2006GB05626

PATIENT
  Age: 66 Year
  Sex: Female

DRUGS (1)
  1. WARFARIN SODIUM [Suspect]
     Indication: DEEP VEIN THROMBOSIS
     Dosage: ORAL
     Route: 048

REACTIONS (5)
  - ABDOMINAL PAIN [None]
  - ELECTROCARDIOGRAM ST SEGMENT ELEVATION [None]
  - INTERNATIONAL NORMALISED RATIO INCREASED [None]
  - MUSCLE HAEMORRHAGE [None]
  - PAIN [None]
